FAERS Safety Report 4704419-0 (Version None)
Quarter: 2005Q2

REPORT INFORMATION
  Report Type: 
  Country: None (occurrence: None)
  Receive Date: 20050628
  Receipt Date: 20050622
  Transmission Date: 20051028
  Serious: Yes (Death)
  Sender: FDA-Public Use
  Company Number: 200510102BNE

PATIENT
  Age: 64 Year
  Sex: Male
  Weight: 75 kg

DRUGS (2)
  1. CIPROFLOXACIN [Suspect]
     Indication: PROSTATITIS
     Dosage: SEE IMAGE
     Dates: end: 20041110
  2. CIPROFLOXACIN [Suspect]
     Indication: PROSTATITIS
     Dosage: SEE IMAGE
     Dates: start: 20041025

REACTIONS (13)
  - ASCITES [None]
  - DISEASE RECURRENCE [None]
  - HEPATIC CANCER METASTATIC [None]
  - HEPATIC NECROSIS [None]
  - HEPATOMEGALY [None]
  - JAUNDICE [None]
  - METASTATIC NEOPLASM [None]
  - PANCREATITIS ACUTE [None]
  - PANCREATITIS HAEMORRHAGIC [None]
  - PROSTATITIS [None]
  - URETERIC DILATATION [None]
  - URINARY TRACT INFECTION [None]
  - WEIGHT DECREASED [None]
